FAERS Safety Report 12449155 (Version 2)
Quarter: 2016Q3

REPORT INFORMATION
  Report Type: Spontaneous
  Country: IL (occurrence: IL)
  Receive Date: 20160608
  Receipt Date: 20160715
  Transmission Date: 20161109
  Serious: Yes (Other)
  Sender: FDA-Public Use
  Company Number: IL-ROCHE-1771885

PATIENT
  Age: 43 Year
  Sex: Female

DRUGS (4)
  1. NAVELBINE [Concomitant]
     Active Substance: VINORELBINE TARTRATE
  2. HERCEPTIN [Concomitant]
     Active Substance: TRASTUZUMAB
     Dosage: CURRENT THERAPY
     Route: 065
  3. KADCYLA [Suspect]
     Active Substance: ADO-TRASTUZUMAB EMTANSINE
     Indication: BREAST CANCER METASTATIC
     Route: 065
  4. HERCEPTIN [Concomitant]
     Active Substance: TRASTUZUMAB
     Indication: BREAST CANCER METASTATIC
     Dosage: WAS ADMINISTERED AS FIRST LINE TREATMENT.
     Route: 065

REACTIONS (1)
  - B-cell lymphoma [Unknown]
